FAERS Safety Report 17439756 (Version 1)
Quarter: 2020Q1

REPORT INFORMATION
  Report Type: Spontaneous
  Country: US (occurrence: US)
  Receive Date: 20200219
  Receipt Date: 20200219
  Transmission Date: 20200409
  Serious: Yes (Disabling)
  Sender: FDA-Public Use
  Company Number: None

PATIENT
  Age: 31 Year
  Sex: Male

DRUGS (1)
  1. OLANZAPINE. [Suspect]
     Active Substance: OLANZAPINE

REACTIONS (3)
  - Product complaint [None]
  - Muscle twitching [None]
  - Hypoaesthesia [None]

NARRATIVE: CASE EVENT DATE: 20200115
